FAERS Safety Report 19301156 (Version 2)
Quarter: 2021Q2

REPORT INFORMATION
  Report Type: Spontaneous
  Country: US (occurrence: US)
  Receive Date: 20210524
  Receipt Date: 20210616
  Transmission Date: 20210717
  Serious: Yes (Hospitalization)
  Sender: FDA-Public Use
  Company Number: US-HISAMITSU-2021-US-008717

PATIENT
  Age: 58 Year
  Sex: Male
  Weight: 77.11 kg

DRUGS (1)
  1. SALONPAS PAIN RELIEVING [Suspect]
     Active Substance: CAMPHOR (SYNTHETIC)\MENTHOL\METHYL SALICYLATE
     Indication: MYALGIA
     Dosage: APPLIED TO SHOULDER
     Route: 061
     Dates: start: 202101, end: 20210420

REACTIONS (10)
  - Application site discolouration [Not Recovered/Not Resolved]
  - Papule [Recovering/Resolving]
  - Application site vesicles [Not Recovered/Not Resolved]
  - Pruritus [Not Recovered/Not Resolved]
  - Application site exfoliation [Not Recovered/Not Resolved]
  - Application site irritation [Recovered/Resolved]
  - Application site burn [Not Recovered/Not Resolved]
  - Skin weeping [Not Recovered/Not Resolved]
  - Rash [Not Recovered/Not Resolved]
  - Erythema [Not Recovered/Not Resolved]

NARRATIVE: CASE EVENT DATE: 20210420
